FAERS Safety Report 20920458 (Version 3)
Quarter: 2022Q4

REPORT INFORMATION
  Report Type: Report from Study
  Country: US (occurrence: None)
  Receive Date: 20220606
  Receipt Date: 20221220
  Transmission Date: 20230112
  Serious: Yes (Life-Threatening, Hospitalization)
  Sender: FDA-Public Use
  Company Number: US-Eisai Inc (Eisai China)-EC-2022-116354

PATIENT
  Age: 62 Year
  Sex: Male

DRUGS (15)
  1. LENVATINIB [Suspect]
     Active Substance: LENVATINIB
     Indication: Anaplastic thyroid cancer
     Route: 048
     Dates: start: 20220421, end: 20220528
  2. PEMBROLIZUMAB [Suspect]
     Active Substance: PEMBROLIZUMAB
     Indication: Anaplastic thyroid cancer
     Dosage: 400 MILLIGRAM IN 0.9% SODIUM CHLORIDE (NS) 50 ML, OVER 60 MINUTES, ONCE AT 100 ML 7HR,STRENGTH: PEMB
     Route: 042
     Dates: start: 20220421, end: 20220421
  3. ASPIRIN [Concomitant]
     Active Substance: ASPIRIN
     Dates: start: 20090101
  4. COREG [Concomitant]
     Active Substance: CARVEDILOL
     Dates: start: 20211101
  5. HYGROTON [Concomitant]
     Active Substance: CHLORTHALIDONE
     Dates: start: 20211218
  6. CLOBETASOL [Concomitant]
     Active Substance: CLOBETASOL
     Dates: start: 20051216
  7. CLOBETASOL [Concomitant]
     Active Substance: CLOBETASOL
     Dates: start: 20220128, end: 2022
  8. DRISDOL [Concomitant]
     Active Substance: ERGOCALCIFEROL
     Dates: start: 20211209
  9. BETAMETHASONE DIPROPIONATE [Concomitant]
     Active Substance: BETAMETHASONE DIPROPIONATE
     Dates: start: 20051216
  10. SYNTHROID [Concomitant]
     Active Substance: LEVOTHYROXINE SODIUM
     Dates: start: 20220127, end: 2022
  11. BENICAR [Concomitant]
     Active Substance: OLMESARTAN MEDOXOMIL
     Dates: start: 20050101
  12. CRESTOR [Concomitant]
     Active Substance: ROSUVASTATIN CALCIUM
     Dates: start: 20050101
  13. IMODIUM [Concomitant]
     Active Substance: LOPERAMIDE HYDROCHLORIDE
     Dates: start: 20220127, end: 2022
  14. UREA [Concomitant]
     Active Substance: UREA
     Dates: start: 20220128, end: 2022
  15. CLOBETASOL [Concomitant]
     Active Substance: CLOBETASOL
     Dates: start: 20220128, end: 2022

REACTIONS (1)
  - Small intestinal perforation [Unknown]

NARRATIVE: CASE EVENT DATE: 20220528
